FAERS Safety Report 7012172-3 (Version None)
Quarter: 2010Q3

REPORT INFORMATION
  Report Type: 
  Country: None (occurrence: None)
  Receive Date: 20100924
  Receipt Date: 20100915
  Transmission Date: 20110219
  Serious: Yes (Hospitalization)
  Sender: FDA-Public Use
  Company Number: KR-ASTRAZENECA-2010SE43260

PATIENT
  Age: 30654 Day
  Sex: Male

DRUGS (6)
  1. CRESTOR [Suspect]
     Indication: HYPERLIPIDAEMIA
     Route: 048
     Dates: start: 20050608
  2. ZESTRIL [Concomitant]
     Indication: HYPERTENSION
     Route: 048
     Dates: start: 20050608
  3. ASPIRIN [Concomitant]
     Indication: MYOCARDIAL INFARCTION
     Dates: start: 20050608
  4. ISOSORBIDE DINITRATE [Concomitant]
     Indication: MYOCARDIAL INFARCTION
     Dates: start: 20050608
  5. PARIET [Concomitant]
     Indication: GASTRIC ULCER
     Dates: start: 20050608
  6. PLAVIX [Concomitant]
     Indication: MYOCARDIAL INFARCTION
     Dates: start: 20050608

REACTIONS (1)
  - PNEUMONIA [None]
